FAERS Safety Report 10400466 (Version 1)
Quarter: 2014Q3

REPORT INFORMATION
  Report Type: Spontaneous
  Country: US (occurrence: US)
  Receive Date: 20140821
  Receipt Date: 20140821
  Transmission Date: 20150326
  Serious: No
  Sender: FDA-Public Use
  Company Number: US-ASTRAZENECA-2013SE87823

PATIENT
  Age: 69 Year
  Sex: Male
  Weight: 93 kg

DRUGS (1)
  1. SYMBICORT [Suspect]
     Active Substance: BUDESONIDE\FORMOTEROL FUMARATE DIHYDRATE
     Indication: ASTHMA
     Dosage: 160/4.5 , 2 PUFFS BID
     Route: 055
     Dates: start: 2011

REACTIONS (3)
  - Dyspnoea [Not Recovered/Not Resolved]
  - Intentional product misuse [Not Recovered/Not Resolved]
  - Circumstance or information capable of leading to medication error [Not Recovered/Not Resolved]

NARRATIVE: CASE EVENT DATE: 201310
